FAERS Safety Report 9370544 (Version 3)
Quarter: 2013Q3

REPORT INFORMATION
  Report Type: Report from Study
  Country: GB (occurrence: GB)
  Receive Date: 20130626
  Receipt Date: 20130712
  Transmission Date: 20140515
  Serious: Yes (Hospitalization)
  Sender: FDA-Public Use
  Company Number: GB-GLAXOSMITHKLINE-B0903029A

PATIENT
  Age: 77 Year
  Sex: Female
  Weight: 57 kg

DRUGS (6)
  1. PAZOPANIB [Suspect]
     Indication: BLADDER NEOPLASM
     Dosage: 600MG PER DAY
     Route: 048
     Dates: start: 20130327, end: 20130604
  2. THYROXINE [Concomitant]
     Indication: HYPOTHYROIDISM
     Dosage: 75MG PER DAY
     Route: 048
     Dates: start: 20080101
  3. MORPHINE [Concomitant]
     Indication: PAIN
     Dosage: 5MG TWICE PER DAY
     Route: 048
     Dates: start: 20130311
  4. ORAMORPH [Concomitant]
     Indication: PAIN
     Dosage: 2.5ML AS REQUIRED
     Route: 048
     Dates: start: 20130311
  5. FRAGMIN [Concomitant]
     Indication: THROMBOSIS PROPHYLAXIS
     Dosage: 12500IU PER DAY
     Route: 042
     Dates: start: 20130327
  6. PARACETAMOL [Concomitant]
     Indication: PAIN
     Dosage: 1000MG FOUR TIMES PER DAY
     Route: 048
     Dates: start: 20130410

REACTIONS (1)
  - Pleural effusion [Recovered/Resolved]
